FAERS Safety Report 24327261 (Version 1)
Quarter: 2024Q3

REPORT INFORMATION
  Report Type: Spontaneous
  Country: US (occurrence: US)
  Receive Date: 20240917
  Receipt Date: 20240917
  Transmission Date: 20241017
  Serious: No
  Sender: PADAGIS
  Company Number: US-PADAGIS-2024PAD01469

PATIENT

DRUGS (2)
  1. TESTOSTERONE CYPIONATE [Suspect]
     Active Substance: TESTOSTERONE CYPIONATE
     Indication: Product used for unknown indication
     Dosage: UNK 4 TIMES (SN 200006547348)
     Route: 065
  2. TESTOSTERONE CYPIONATE [Suspect]
     Active Substance: TESTOSTERONE CYPIONATE
     Dosage: UNK (SN200004529834)
     Route: 065

REACTIONS (4)
  - Lethargy [Recovered/Resolved]
  - Increased appetite [Unknown]
  - Blood testosterone decreased [Recovering/Resolving]
  - Libido decreased [Recovered/Resolved]
